FAERS Safety Report 9519129 (Version 1)
Quarter: 2013Q1

REPORT INFORMATION
  Report Type: Spontaneous
  Country: US (occurrence: None)
  Receive Date: 20130305
  Receipt Date: 20130305
  Transmission Date: 20140127
  Serious: Yes (Other)
  Sender: FDA-Public Use
  Company Number: 163-21880-12101699

PATIENT
  Age: 77 Year
  Sex: Female
  Weight: 63.05 kg

DRUGS (11)
  1. REVLIMID [Suspect]
     Indication: PLASMA CELL MYELOMA
     Route: 048
     Dates: start: 20110131
  2. SALINE (SODIUM CHLORIDE) (SPRAY (NOT INHALATION)) [Concomitant]
  3. DEXAMETHASONE (DEXAMETHASONE) [Concomitant]
  4. BONIVA (IBANDRONATE SODIUM) [Concomitant]
  5. POTASSIUM CHLORIDE (POTASSIUM CHLORIDE) [Concomitant]
  6. TUMS (CALCIUM CARBONATE) [Concomitant]
  7. ADVAIR (SERETIDE MITE) [Concomitant]
  8. FISH OIL (FISH OIL) [Concomitant]
  9. VITAMINS [Concomitant]
  10. VITAMIN D (ERGOCALCIFEROL) [Concomitant]
  11. ASPIRIN (ACETYLSALICYLIC ACID) [Concomitant]

REACTIONS (5)
  - Laryngitis [None]
  - Mucosal inflammation [None]
  - Fatigue [None]
  - Bronchitis [None]
  - Gastroenteritis viral [None]
